FAERS Safety Report 23056261 (Version 1)
Quarter: 2023Q4

REPORT INFORMATION
  Report Type: Spontaneous
  Country: None (occurrence: NL)
  Receive Date: 20231011
  Receipt Date: 20231011
  Transmission Date: 20240110
  Serious: Yes (Other)
  Sender: FDA-Public Use
  Company Number: NL-Nova Laboratories Limited-2146976

PATIENT
  Age: 14 Year

DRUGS (21)
  1. PURIXAN [Suspect]
     Active Substance: MERCAPTOPURINE
     Indication: Acute lymphocytic leukaemia
     Route: 048
  2. PEGASPARGASE [Suspect]
     Active Substance: PEGASPARGASE
     Route: 042
  3. PREDNISOLONE [Suspect]
     Active Substance: PREDNISOLONE
  4. DEXAMETHASONE [Suspect]
     Active Substance: DEXAMETHASONE
     Route: 048
  5. ASPARAGINASE [Suspect]
     Active Substance: ASPARAGINASE
     Route: 042
  6. CYCLOPHOSPHAMIDE [Suspect]
     Active Substance: CYCLOPHOSPHAMIDE
     Route: 042
  7. CYTARABINE [Suspect]
     Active Substance: CYTARABINE
     Route: 042
  8. CYTARABINE [Suspect]
     Active Substance: CYTARABINE
     Route: 042
  9. ETOPOSIDE [Suspect]
     Active Substance: ETOPOSIDE
     Route: 042
  10. VINCRISTINE [Suspect]
     Active Substance: VINCRISTINE
     Route: 042
  11. THIOGUANINE [Suspect]
     Active Substance: THIOGUANINE
     Route: 048
  12. METHOTREXATE [Suspect]
     Active Substance: METHOTREXATE
     Route: 037
  13. FLUDARABINE [Suspect]
     Active Substance: FLUDARABINE PHOSPHATE
     Route: 042
  14. DAUNORUBICIN [Suspect]
     Active Substance: DAUNORUBICIN
     Route: 042
  15. DOXORUBICIN [Suspect]
     Active Substance: DOXORUBICIN
     Route: 042
  16. IDARUBICIN [Suspect]
     Active Substance: IDARUBICIN
     Route: 042
  17. MITOXANTRONE [Suspect]
     Active Substance: MITOXANTRONE HYDROCHLORIDE
     Route: 042
  18. INOTUZUMAB OZOGAMICIN [Suspect]
     Active Substance: INOTUZUMAB OZOGAMICIN
     Route: 042
  19. BLINATUMOMAB [Suspect]
     Active Substance: BLINATUMOMAB
     Route: 042
  20. IMATINIB. [Suspect]
     Active Substance: IMATINIB MESYLATE
     Route: 042
  21. NELARABINE [Suspect]
     Active Substance: NELARABINE
     Route: 042

REACTIONS (15)
  - Blood albumin decreased [Unknown]
  - Neurotoxicity [None]
  - Activated partial thromboplastin time prolonged [Unknown]
  - Aspergillus infection [Unknown]
  - Prothrombin time prolonged [Unknown]
  - Ammonia increased [Unknown]
  - Hypertrophy [Unknown]
  - Myopathy [Unknown]
  - Muscular weakness [Unknown]
  - Cardiotoxicity [Unknown]
  - Brain natriuretic peptide increased [Unknown]
  - Hepatotoxicity [Unknown]
  - Blood bilirubin increased [Unknown]
  - Aspartate aminotransferase increased [Unknown]
  - Alanine aminotransferase increased [Unknown]
